FAERS Safety Report 15377058 (Version 1)
Quarter: 2018Q3

REPORT INFORMATION
  Report Type: Spontaneous
  Country: US (occurrence: US)
  Receive Date: 20180913
  Receipt Date: 20180913
  Transmission Date: 20181010
  Serious: No
  Sender: FDA-Public Use
  Company Number: US-JNJFOC-20180817301

PATIENT
  Sex: Male

DRUGS (2)
  1. MENS ROGAINE EXTRA STRENGTH [Suspect]
     Active Substance: MINOXIDIL
     Route: 061
  2. MENS ROGAINE EXTRA STRENGTH [Suspect]
     Active Substance: MINOXIDIL
     Indication: ALOPECIA
     Dosage: ONE FULL CAPFUL, ONCE
     Route: 061
     Dates: start: 20180812, end: 20180812

REACTIONS (4)
  - Product administered at inappropriate site [Unknown]
  - Chest pain [Unknown]
  - Chest discomfort [Unknown]
  - Incorrect dose administered [Unknown]
